FAERS Safety Report 7903605 (Version 3)
Quarter: 2013Q4

REPORT INFORMATION
  Report Type: Spontaneous
  Country: US (occurrence: US)
  Receive Date: 20110418
  Receipt Date: 20131119
  Transmission Date: 20140711
  Serious: Yes (Other)
  Sender: FDA-Public Use
  Company Number: US-BAYER-201041429NA

PATIENT
  Age: 36 Year
  Sex: Female

DRUGS (18)
  1. YASMIN [Suspect]
     Indication: ACNE
     Dosage: UNK UNK, QD
     Dates: start: 20080103, end: 20080610
  2. YASMIN [Suspect]
     Indication: CONTRACEPTION
  3. OCELLA [Suspect]
     Indication: CONTRACEPTION
     Dosage: UNK UNK, QD
     Dates: start: 20080707, end: 20081103
  4. OCELLA [Suspect]
     Indication: ACNE
     Dosage: UNK
     Dates: start: 20090423, end: 20091001
  5. TRIAMCINOLON [Concomitant]
  6. LORAZEPAM [Concomitant]
     Dosage: 0.5 MG, UNK
     Route: 048
  7. PROPRANOLOL [Concomitant]
     Indication: ANXIETY
     Dosage: 40 MG, UNK
     Route: 048
  8. LOVASTATIN [Concomitant]
     Dosage: 40 MG, UNK
     Route: 048
  9. OMEPRAZOLE [Concomitant]
     Dosage: 20 MG, UNK
     Route: 048
  10. PAROXETINE [Concomitant]
     Dosage: 20 MG, UNK
     Route: 048
  11. SIMVASTATIN [Concomitant]
     Indication: HYPERLIPIDAEMIA
     Dosage: 20 MG, UNK
     Route: 048
  12. SERTRALINE [Concomitant]
     Dosage: 50 MG, UNK
     Route: 048
  13. LEVOTHYROXINE [Concomitant]
     Dosage: 25 UNK, UNK
     Route: 048
  14. FLUCONAZOLE [Concomitant]
     Dosage: 150 MG, UNK
     Route: 048
  15. METRONIDAZOLE [Concomitant]
     Dosage: 0.75 UNK, UNK
  16. AMOXICILLIN W/CLAVULANATE POTASSIUM [Concomitant]
     Route: 048
  17. LAMOTRIGINE [Concomitant]
     Dosage: 25 MG, UNK
     Route: 048
  18. ZOLOFT [Concomitant]
     Indication: DEPRESSION

REACTIONS (2)
  - Biliary dyskinesia [None]
  - Cholecystectomy [None]
